FAERS Safety Report 4988590-1 (Version None)
Quarter: 2006Q2

REPORT INFORMATION
  Report Type: 
  Country: None (occurrence: None)
  Receive Date: 20060426
  Receipt Date: 20060412
  Transmission Date: 20061013
  Serious: Yes (Other)
  Sender: FDA-Public Use
  Company Number: 109866ISR

PATIENT
  Age: 43 Year
  Sex: Male

DRUGS (1)
  1. GLATIRAMER ACETATE [Suspect]
     Dosage: 20 MILLIGRAM  SUBCUTANEOUS
     Route: 058
     Dates: start: 20020501

REACTIONS (2)
  - INTERVERTEBRAL DISC PROTRUSION [None]
  - PERONEAL NERVE PALSY [None]
